FAERS Safety Report 9736279 (Version 1)
Quarter: 2013Q4

REPORT INFORMATION
  Report Type: Report from Study
  Country: FR (occurrence: FR)
  Receive Date: 20131206
  Receipt Date: 20131206
  Transmission Date: 20140711
  Serious: Yes (Other)
  Sender: FDA-Public Use
  Company Number: FR-ROCHE-1310882

PATIENT
  Sex: 0

DRUGS (2)
  1. RANIBIZUMAB [Suspect]
     Indication: AGE-RELATED MACULAR DEGENERATION
     Dosage: 0.50 MG IN 0.05 ML OF SOLUTION
     Route: 050
  2. BEVACIZUMAB [Suspect]
     Indication: AGE-RELATED MACULAR DEGENERATION
     Route: 050

REACTIONS (14)
  - Endophthalmitis [Unknown]
  - Myocardial infarction [Unknown]
  - Pulmonary embolism [Unknown]
  - Hypertension [Unknown]
  - Cardiac disorder [Unknown]
  - Infection [Unknown]
  - Nervous system disorder [Unknown]
  - Neoplasm [Unknown]
  - Gastrointestinal haemorrhage [Unknown]
  - Amaurosis fugax [Unknown]
  - Retinal artery occlusion [Unknown]
  - Subretinal haematoma [Unknown]
  - Visual acuity reduced [Unknown]
  - Vitreous haemorrhage [Unknown]
